FAERS Safety Report 8687029 (Version 2)
Quarter: 2012Q4

REPORT INFORMATION
  Report Type: 
  Country: CH (occurrence: CH)
  Receive Date: 20120727
  Receipt Date: 20120830
  Transmission Date: 20130627
  Serious: Yes (Hospitalization, Other)
  Sender: FDA-Public Use
  Company Number: CH-MILLENNIUM PHARMACEUTICALS, INC.-2012-05051

PATIENT

DRUGS (4)
  1. VELCADE [Suspect]
     Indication: MULTIPLE MYELOMA
     Dosage: 1.5 mg, UNK
     Route: 065
     Dates: start: 20120227, end: 20120613
  2. DEXAMETHASONE [Concomitant]
     Indication: MULTIPLE MYELOMA
     Dosage: 8 mg, UNK
  3. COVERSUM                           /00790701/ [Concomitant]
  4. BACTRIM [Concomitant]

REACTIONS (3)
  - Depression [Recovered/Resolved]
  - General physical health deterioration [Recovered/Resolved]
  - Delirium [Unknown]
